FAERS Safety Report 17001918 (Version 1)
Quarter: 2019Q4

REPORT INFORMATION
  Report Type: Spontaneous
  Country: ZA (occurrence: ZA)
  Receive Date: 20191106
  Receipt Date: 20191106
  Transmission Date: 20200122
  Serious: Yes (Other)
  Sender: FDA-Public Use
  Company Number: ZA-ROCHE-2347474

PATIENT
  Age: 68 Year
  Sex: Female
  Weight: 58 kg

DRUGS (1)
  1. BONIVA [Suspect]
     Active Substance: IBANDRONATE SODIUM
     Indication: OSTEOPOROSIS
     Route: 048
     Dates: start: 201812, end: 201901

REACTIONS (5)
  - Tongue coated [Unknown]
  - Wrong technique in product usage process [Not Recovered/Not Resolved]
  - Chemical burn [Unknown]
  - Glossodynia [Unknown]
  - Tongue geographic [Unknown]

NARRATIVE: CASE EVENT DATE: 20190121
